FAERS Safety Report 8826613 (Version 1)
Quarter: 2012Q4

REPORT INFORMATION
  Report Type: 
  Country: US (occurrence: US)
  Receive Date: 20121005
  Receipt Date: 20121005
  Transmission Date: 20130627
  Serious: Yes (Death)
  Sender: FDA-Public Use
  Company Number: CHPA2012US020781

PATIENT
  Sex: Male

DRUGS (1)
  1. HERBALS [Suspect]
     Dosage: Unk, Unk
     Route: 048

REACTIONS (1)
  - Cerebrovascular accident [Fatal]
